FAERS Safety Report 5209936-5 (Version None)
Quarter: 2006Q4

REPORT INFORMATION
  Report Type: 
  Country: None (occurrence: None)
  Receive Date: 20061128
  Receipt Date: 20060511
  Transmission Date: 20070319
  Serious: Yes (Other)
  Sender: FDA-Public Use
  Company Number: 2006063316

PATIENT
  Age: 74 Year
  Sex: Male
  Weight: 80.2867 kg

DRUGS (3)
  1. TIKOSYN [Suspect]
     Indication: ARRHYTHMIA
     Dosage: 1 MG (0.5 MG, 2 IN 1 D)
     Dates: start: 20060502
  2. PRAVACHOL [Concomitant]
  3. COUMADIN [Concomitant]

REACTIONS (4)
  - ARRHYTHMIA [None]
  - BLOOD PRESSURE INCREASED [None]
  - DIZZINESS [None]
  - FEELING ABNORMAL [None]
